FAERS Safety Report 7419862-9 (Version None)
Quarter: 2011Q2

REPORT INFORMATION
  Report Type: 
  Country: None (occurrence: None)
  Receive Date: 20110413
  Receipt Date: 20110413
  Transmission Date: 20111010
  Serious: Yes (Hospitalization)
  Sender: FDA-Public Use
  Company Number: None

PATIENT
  Age: 77 Year
  Sex: Female
  Weight: 42 kg

DRUGS (25)
  1. NORVASC [Concomitant]
  2. BYSTOLIC [Concomitant]
  3. RANEXA [Concomitant]
  4. ASPIRIN [Concomitant]
  5. VITAMIN D [Concomitant]
  6. PLAVIX [Concomitant]
  7. MIRALAX [Concomitant]
  8. XANAX [Concomitant]
  9. ZOFRAN [Concomitant]
  10. NORCO [Concomitant]
  11. SENNA-S [Concomitant]
  12. LIDOCAINE [Concomitant]
  13. TRAMADOL [Concomitant]
  14. CITRACAL FERITES [Concomitant]
  15. COUMADIN [Suspect]
     Indication: THROMBOSIS PROPHYLAXIS
     Dates: start: 20110405, end: 20110409
  16. COUMADIN [Suspect]
     Indication: JOINT ARTHROPLASTY
     Dates: start: 20110405, end: 20110409
  17. NITROGLYCERIN [Concomitant]
  18. PROTONIX [Concomitant]
  19. IRON SULFATETHIAMIN COMPOUND TAB [Concomitant]
  20. ISOSORBIDE MONONITRATE [Concomitant]
  21. FORTEO [Concomitant]
  22. AMBIEN [Concomitant]
  23. ACETAMINOPHEN [Concomitant]
  24. FENTANYL-100 [Concomitant]
  25. ZOLOFT [Concomitant]

REACTIONS (2)
  - HAEMATOMA [None]
  - INTERNATIONAL NORMALISED RATIO INCREASED [None]
